FAERS Safety Report 17578731 (Version 3)
Quarter: 2022Q2

REPORT INFORMATION
  Report Type: Spontaneous
  Country: PT (occurrence: PT)
  Receive Date: 20200324
  Receipt Date: 20220401
  Transmission Date: 20220721
  Serious: Yes (Death, Other)
  Sender: FDA-Public Use
  Company Number: PT-009507513-2003PRT007365

PATIENT
  Sex: Female

DRUGS (2)
  1. ZERBAXA [Suspect]
     Active Substance: CEFTOLOZANE SULFATE\TAZOBACTAM SODIUM
     Indication: Urinary tract infection
     Dosage: 1.5 GRAM, Q8H, FOR 3 DAYS.
  2. ZERBAXA [Suspect]
     Active Substance: CEFTOLOZANE SULFATE\TAZOBACTAM SODIUM
     Indication: Pseudomonas infection

REACTIONS (3)
  - Death [Fatal]
  - Incorrect dose administered [Unknown]
  - Incorrect product administration duration [Unknown]
